FAERS Safety Report 17268530 (Version 2)
Quarter: 2020Q1

REPORT INFORMATION
  Report Type: Spontaneous
  Country: DE (occurrence: DE)
  Receive Date: 20200114
  Receipt Date: 20200309
  Transmission Date: 20200409
  Serious: Yes (Life-Threatening, Hospitalization, Other)
  Sender: FDA-Public Use
  Company Number: DE-JNJFOC-20200116251

PATIENT
  Age: 76 Year
  Sex: Female

DRUGS (1)
  1. XEPLION [Suspect]
     Active Substance: PALIPERIDONE PALMITATE
     Indication: SCHIZOAFFECTIVE DISORDER
     Route: 030

REACTIONS (10)
  - Arthritis [Recovering/Resolving]
  - Circulatory collapse [Recovering/Resolving]
  - Thoracic vertebral fracture [Recovering/Resolving]
  - Hypovitaminosis [Recovering/Resolving]
  - Product dose omission [Unknown]
  - Chronic obstructive pulmonary disease [Recovering/Resolving]
  - Rib fracture [Recovering/Resolving]
  - Atrial fibrillation [Recovering/Resolving]
  - Delirium [Recovering/Resolving]
  - Urinary tract infection [Recovering/Resolving]

NARRATIVE: CASE EVENT DATE: 201912
